FAERS Safety Report 22386471 (Version 1)
Quarter: 2023Q2

REPORT INFORMATION
  Report Type: Spontaneous
  Country: KR (occurrence: KR)
  Receive Date: 20230531
  Receipt Date: 20230531
  Transmission Date: 20230722
  Serious: Yes (Other)
  Sender: FDA-Public Use
  Company Number: KR-JNJFOC-20230550387

PATIENT

DRUGS (1)
  1. UPTRAVI [Suspect]
     Active Substance: SELEXIPAG
     Indication: Pulmonary arterial hypertension
     Route: 048

REACTIONS (16)
  - Cardiac failure [Unknown]
  - Pulmonary hypertension [Unknown]
  - Diarrhoea [Unknown]
  - Myalgia [Unknown]
  - Headache [Unknown]
  - Nausea [Unknown]
  - Dyspepsia [Unknown]
  - Brain natriuretic peptide increased [Unknown]
  - Pain in jaw [Unknown]
  - Flushing [Unknown]
  - Dizziness [Unknown]
  - Arthralgia [Unknown]
  - Generalised oedema [Unknown]
  - Upper respiratory tract infection [Unknown]
  - Vomiting [Unknown]
  - Dyspnoea [Unknown]
